FAERS Safety Report 4897403-8 (Version None)
Quarter: 2006Q1

REPORT INFORMATION
  Report Type: 
  Country: None (occurrence: None)
  Receive Date: 20060130
  Receipt Date: 20060130
  Transmission Date: 20060701
  Serious: Yes (Other)
  Sender: FDA-Public Use
  Company Number: None

PATIENT
  Age: 42 Year
  Sex: Female
  Weight: 68.0396 kg

DRUGS (2)
  1. LEXAPRO [Suspect]
     Indication: DEPRESSION
     Dosage: 10 MG DAILY
     Dates: start: 20050101, end: 20060120
  2. LEXAPRO [Suspect]
     Indication: MARITAL PROBLEM
     Dosage: 10 MG DAILY
     Dates: start: 20050101, end: 20060120

REACTIONS (3)
  - ABNORMAL DREAMS [None]
  - DRUG WITHDRAWAL SYNDROME [None]
  - NIGHTMARE [None]
